FAERS Safety Report 6735341-6 (Version None)
Quarter: 2010Q2

REPORT INFORMATION
  Report Type: 
  Country: None (occurrence: None)
  Receive Date: 20100520
  Receipt Date: 20100520
  Transmission Date: 20101027
  Serious: Yes (Life-Threatening, Hospitalization, Disabling)
  Sender: FDA-Public Use
  Company Number: None

PATIENT
  Age: 69 Year
  Sex: Female
  Weight: 70.3075 kg

DRUGS (1)
  1. PREMARIN [Suspect]
     Indication: CARDIOVASCULAR DISORDER
     Dosage: DAILY
     Dates: start: 19870101, end: 20060101

REACTIONS (1)
  - BREAST CANCER [None]
